FAERS Safety Report 4957248-7 (Version None)
Quarter: 2006Q1

REPORT INFORMATION
  Report Type: 
  Country: None (occurrence: None)
  Receive Date: 20060323
  Receipt Date: 20060315
  Transmission Date: 20060701
  Serious: Yes (Other)
  Sender: FDA-Public Use
  Company Number: SU-2006-004749

PATIENT
  Age: 72 Year
  Sex: Female
  Weight: 81.6475 kg

DRUGS (6)
  1. BENICAR [Suspect]
     Indication: HYPERTENSION
     Dosage: 1 DF QD PO
     Route: 048
  2. ZYRTEC [Suspect]
     Indication: MULTIPLE ALLERGIES
     Dosage: 1 DF BID PO
     Route: 048
  3. ZYRTEC-D 12 HOUR [Suspect]
     Indication: MULTIPLE ALLERGIES
     Dosage: MG BID PO
     Route: 048
  4. LEVOTHROID [Concomitant]
  5. SYNTHROID [Concomitant]
  6. PREVACID [Concomitant]

REACTIONS (10)
  - ALLERGY TEST POSITIVE [None]
  - ALLERGY TO ANIMAL [None]
  - ALLERGY TO PLANTS [None]
  - ASTHMA [None]
  - DRUG INEFFECTIVE [None]
  - EMPHYSEMA [None]
  - HYPOTENSION [None]
  - INSOMNIA [None]
  - NERVOUS SYSTEM DISORDER [None]
  - SOMNOLENCE [None]
